FAERS Safety Report 4327143-5 (Version None)
Quarter: 2004Q1

REPORT INFORMATION
  Report Type: 
  Country: None (occurrence: None)
  Receive Date: 20040330
  Receipt Date: 20031007
  Transmission Date: 20041129
  Serious: Yes (Death)
  Sender: FDA-Public Use
  Company Number: GB-GLAXOSMITHKLINE-B0311037A

PATIENT
  Age: 28 Year
  Sex: Female

DRUGS (1)
  1. SEROXAT [Suspect]
     Route: 048

REACTIONS (3)
  - ADVERSE EVENT [None]
  - COMPLETED SUICIDE [None]
  - MENTAL DISORDER [None]
